FAERS Safety Report 7313138-6 (Version None)
Quarter: 2011Q1

REPORT INFORMATION
  Report Type: 
  Country: None (occurrence: None)
  Receive Date: 20110216
  Receipt Date: 20110216
  Transmission Date: 20110831
  Serious: Yes (Hospitalization, Other)
  Sender: FDA-Public Use
  Company Number: None

PATIENT
  Age: 55 Year
  Sex: Female

DRUGS (1)
  1. NABI-HB [Suspect]
     Indication: LIVER TRANSPLANT
     Dosage: 10,000 IU = 32ML IN 250NACL QMONTH IV
     Route: 042
     Dates: start: 20090601

REACTIONS (2)
  - DIALYSIS [None]
  - RENAL FAILURE [None]
